FAERS Safety Report 8842795 (Version 1)
Quarter: 2012Q4

REPORT INFORMATION
  Report Type: 
  Country: CL (occurrence: CL)
  Receive Date: 20121016
  Receipt Date: 20121016
  Transmission Date: 20130627
  Serious: Yes (Other)
  Sender: FDA-Public Use
  Company Number: CL-BAYER-2012-104220

PATIENT
  Age: 70 Year
  Sex: Female

DRUGS (3)
  1. XARELTO [Suspect]
     Indication: CEREBROVASCULAR ACCIDENT PROPHYLAXIS
     Dosage: 20 mg, QD
  2. XARELTO [Interacting]
     Indication: ATRIAL FIBRILLATION
     Dosage: 15 mg, QD
  3. ACETYLSALICYLIC ACID (} 100 MG) [Interacting]
     Dosage: UNK

REACTIONS (5)
  - Oesophageal haemorrhage [None]
  - Gastrooesophageal reflux disease [None]
  - Oesophageal ulcer [None]
  - Respiratory tract infection [None]
  - Sputum discoloured [None]
